FAERS Safety Report 9826130 (Version 1)
Quarter: 2014Q1

REPORT INFORMATION
  Report Type: Spontaneous
  Country: US (occurrence: None)
  Receive Date: 20140116
  Receipt Date: 20140116
  Transmission Date: 20141002
  Serious: Yes (Other)
  Sender: FDA-Public Use
  Company Number: None

PATIENT
  Age: 30 Year
  Sex: Female
  Weight: 38.56 kg

DRUGS (1)
  1. LEVOFLOXACIN 500 MG [Suspect]
     Indication: SINUSITIS
     Dosage: 10 PILLS  ONCE DAILY  TAKEN BY MOUTH
     Route: 048
     Dates: start: 20131216, end: 20131218

REACTIONS (5)
  - Tinnitus [None]
  - Skin sensitisation [None]
  - Erythema [None]
  - Ear pain [None]
  - Ear swelling [None]
